FAERS Safety Report 26154179 (Version 1)
Quarter: 2025Q4

REPORT INFORMATION
  Report Type: Spontaneous
  Country: US (occurrence: US)
  Receive Date: 20251215
  Receipt Date: 20251215
  Transmission Date: 20260118
  Serious: No
  Sender: SANOFI AVENTIS
  Company Number: US-SA-2025SA371304

PATIENT
  Age: 46 Year
  Sex: Male
  Weight: 65.82 kg

DRUGS (1)
  1. DUPIXENT [Suspect]
     Active Substance: DUPILUMAB
     Dosage: 300 MG, QOW
     Route: 058

REACTIONS (3)
  - Fatigue [Recovered/Resolved]
  - Injection site pain [Recovering/Resolving]
  - Injection site swelling [Recovering/Resolving]
